FAERS Safety Report 8012469-4 (Version None)
Quarter: 2011Q4

REPORT INFORMATION
  Report Type: 
  Country: None (occurrence: None)
  Receive Date: 20111228
  Receipt Date: 20111220
  Transmission Date: 20120403
  Serious: Yes (Hospitalization)
  Sender: FDA-Public Use
  Company Number: IT-GILEAD-2011-0048549

PATIENT
  Age: 76 Year
  Sex: Male

DRUGS (4)
  1. RANOLAZINE [Suspect]
     Indication: PRODUCT USED FOR UNKNOWN INDICATION
     Dosage: 375 MG, BID
     Route: 048
     Dates: start: 20110801
  2. BIMIXIN [Interacting]
     Indication: DIVERTICULITIS
     Dosage: UNK
     Route: 048
     Dates: start: 20111001, end: 20111001
  3. RANOLAZINE [Interacting]
     Dosage: UNK
  4. RIFAXIMIN [Concomitant]
     Dosage: 6 DF, Q1MONTH

REACTIONS (3)
  - SYNCOPE [None]
  - DRUG INTERACTION [None]
  - VOMITING [None]
